FAERS Safety Report 24402950 (Version 1)
Quarter: 2024Q4

REPORT INFORMATION
  Report Type: Report from Study
  Country: IT (occurrence: IT)
  Receive Date: 20241007
  Receipt Date: 20241007
  Transmission Date: 20250115
  Serious: Yes (Other)
  Sender: ROCHE
  Company Number: IT-ROCHE-10000096244

PATIENT

DRUGS (1)
  1. RITUXIMAB [Suspect]
     Active Substance: RITUXIMAB
     Indication: Nodal marginal zone B-cell lymphoma
     Dosage: FOR 4 WEEKS
     Route: 042

REACTIONS (14)
  - Asthenia [Unknown]
  - Neutropenia [Unknown]
  - Discomfort [Unknown]
  - Anaemia [Unknown]
  - Pyrexia [Unknown]
  - Rash [Unknown]
  - Abdominal pain [Unknown]
  - Hypertension [Unknown]
  - Pruritus [Unknown]
  - Oropharyngeal pain [Unknown]
  - Cough [Unknown]
  - Urticaria [Unknown]
  - Chills [Unknown]
  - Nausea [Unknown]
